FAERS Safety Report 15587383 (Version 6)
Quarter: 2019Q1

REPORT INFORMATION
  Report Type: Report from Study
  Country: AU (occurrence: AU)
  Receive Date: 20181105
  Receipt Date: 20190214
  Transmission Date: 20190417
  Serious: Yes (Hospitalization, Other)
  Sender: FDA-Public Use
  Company Number: AU-JNJFOC-20181034102

PATIENT
  Sex: Female

DRUGS (4)
  1. TREMFYA [Suspect]
     Active Substance: GUSELKUMAB
     Indication: PSORIASIS
     Route: 058
  2. TREMFYA [Suspect]
     Active Substance: GUSELKUMAB
     Indication: PSORIASIS
     Route: 058
  3. TREMFYA [Suspect]
     Active Substance: GUSELKUMAB
     Indication: PSORIASIS
     Route: 058
     Dates: start: 20180925
  4. TREMFYA [Suspect]
     Active Substance: GUSELKUMAB
     Indication: PSORIASIS
     Route: 058

REACTIONS (13)
  - Arthropod bite [Unknown]
  - Stress [Unknown]
  - Lower respiratory tract infection [Unknown]
  - Injection site bruising [Unknown]
  - Cellulitis [Unknown]
  - Gastrointestinal haemorrhage [Recovered/Resolved]
  - Rash [Unknown]
  - Diarrhoea [Recovering/Resolving]
  - Product use issue [Unknown]
  - Skin disorder [Unknown]
  - Drug ineffective [Unknown]
  - Off label use [Unknown]
  - Injection site pain [Unknown]
